FAERS Safety Report 5519100-8 (Version None)
Quarter: 2007Q4

REPORT INFORMATION
  Report Type: 
  Country: None (occurrence: None)
  Receive Date: 20071114
  Receipt Date: 20071030
  Transmission Date: 20080405
  Serious: Yes (Hospitalization)
  Sender: FDA-Public Use
  Company Number: 2006SP009041

PATIENT
  Age: 75 Year
  Sex: Male

DRUGS (7)
  1. POSACONAZOLE [Suspect]
     Indication: DRUG USE FOR UNKNOWN INDICATION
     Dosage: 400 MG; QD; IV, 300 MG; QD; IV, 400 MG; BID; PO
     Route: 048
     Dates: start: 20061206, end: 20061206
  2. POSACONAZOLE [Suspect]
     Indication: DRUG USE FOR UNKNOWN INDICATION
     Dosage: 400 MG; QD; IV, 300 MG; QD; IV, 400 MG; BID; PO
     Route: 048
     Dates: start: 20061207, end: 20061219
  3. POSACONAZOLE [Suspect]
     Indication: DRUG USE FOR UNKNOWN INDICATION
     Dosage: 400 MG; QD; IV, 300 MG; QD; IV, 400 MG; BID; PO
     Route: 048
     Dates: start: 20061220, end: 20061223
  4. METOPROLOL SUCCINATE [Concomitant]
  5. POTASSIUM CHLORIDE [Concomitant]
  6. RAMIPRIL [Concomitant]
  7. BELOK ZOK MITE [Concomitant]

REACTIONS (2)
  - ABDOMINAL PAIN [None]
  - CARDIAC FAILURE [None]
